FAERS Safety Report 13708584 (Version 3)
Quarter: 2020Q3

REPORT INFORMATION
  Report Type: Report from Study
  Country: GR (occurrence: GR)
  Receive Date: 20170630
  Receipt Date: 20180404
  Transmission Date: 20201105
  Serious: Yes (Death, Hospitalization)
  Sender: FDA-Public Use
  Company Number: GR-JNJFOC-20160623304

PATIENT
  Age: 64 Year
  Sex: Male
  Weight: 95 kg

DRUGS (2)
  1. DARATUMUMAB [Suspect]
     Active Substance: DARATUMUMAB
     Route: 042
  2. DARATUMUMAB [Suspect]
     Active Substance: DARATUMUMAB
     Indication: PLASMA CELL MYELOMA
     Route: 042
     Dates: start: 20160412, end: 20160526

REACTIONS (5)
  - Cardiac failure acute [Fatal]
  - Hyperviscosity syndrome [Unknown]
  - Drug ineffective [Not Recovered/Not Resolved]
  - Myocardial infarction [Fatal]
  - Disease progression [Not Recovered/Not Resolved]

NARRATIVE: CASE EVENT DATE: 20160517
